FAERS Safety Report 4500649-1 (Version None)
Quarter: 2004Q4

REPORT INFORMATION
  Report Type: 
  Country: None (occurrence: None)
  Receive Date: 20041115
  Receipt Date: 20040727
  Transmission Date: 20050328
  Serious: Yes (Hospitalization)
  Sender: FDA-Public Use
  Company Number: FR-BRISTOL-MYERS SQUIBB COMPANY-12651675

PATIENT
  Age: 79 Year
  Sex: Male
  Weight: 64 kg

DRUGS (14)
  1. TAXOL [Suspect]
     Indication: METASTATIC BRONCHIAL CARCINOMA
     Dosage: THERAPY DATES: 11-MAY TO 01-JUN-2004
     Route: 042
     Dates: start: 20040601, end: 20040601
  2. CARBOPLATINE [Suspect]
     Indication: METASTATIC BRONCHIAL CARCINOMA
     Dosage: THERAPY DATES: 11-MAY TO 01-JUN-2004
     Route: 042
     Dates: start: 20040601, end: 20040601
  3. POLARAMINE [Suspect]
     Route: 042
     Dates: start: 20040601, end: 20040601
  4. SOLU-MEDROL [Suspect]
     Route: 042
     Dates: start: 20040601, end: 20040601
  5. AZANTAC [Suspect]
     Route: 042
     Dates: start: 20040601, end: 20040601
  6. ZOPHREN [Suspect]
     Route: 042
     Dates: start: 20040601, end: 20040601
  7. PREDNISOLONE [Concomitant]
  8. DURAGESIC [Concomitant]
  9. SEVREDOL [Concomitant]
  10. MOVICOL [Concomitant]
  11. PERISTALTINE [Concomitant]
  12. ZOLOFT [Concomitant]
  13. IMOVANE [Concomitant]
  14. TARDYFERON [Concomitant]

REACTIONS (2)
  - CHILLS [None]
  - HYPERTHERMIA [None]
